FAERS Safety Report 18328877 (Version 1)
Quarter: 2020Q3

REPORT INFORMATION
  Report Type: Spontaneous
  Country: DE (occurrence: DE)
  Receive Date: 20200930
  Receipt Date: 20200930
  Transmission Date: 20201103
  Serious: Yes (Other)
  Sender: FDA-Public Use
  Company Number: DE-DENTSPLY-2020SCDP000309

PATIENT
  Sex: Female

DRUGS (1)
  1. XYLOCAINE [Suspect]
     Active Substance: LIDOCAINE HYDROCHLORIDE
     Indication: PRODUCT USED FOR UNKNOWN INDICATION
     Dosage: 1 DOSAGE FORM, ONCE ONE SPRAY, OROMUCOSAL SPRAY SOLUTION
     Route: 065

REACTIONS (1)
  - Cerebrovascular accident [Unknown]
